FAERS Safety Report 6331173-1 (Version None)
Quarter: 2009Q3

REPORT INFORMATION
  Report Type: 
  Country: None (occurrence: None)
  Receive Date: 20090827
  Receipt Date: 20090818
  Transmission Date: 20100115
  Serious: Yes (Other)
  Sender: FDA-Public Use
  Company Number: US-PFIZER INC-2009253871

PATIENT
  Sex: Female

DRUGS (1)
  1. NICOTROL [Suspect]
     Indication: SMOKING CESSATION THERAPY
     Dates: start: 20090804, end: 20090806

REACTIONS (4)
  - CARDIAC DISORDER [None]
  - LIP BLISTER [None]
  - ORAL PAIN [None]
  - PHARYNGITIS [None]
